FAERS Safety Report 9224742 (Version 2)
Quarter: 2013Q2

REPORT INFORMATION
  Report Type: Report from Study
  Country: JP (occurrence: JP)
  Receive Date: 20130411
  Receipt Date: 20130607
  Transmission Date: 20140414
  Serious: Yes (Death, Life-Threatening, Other)
  Sender: FDA-Public Use
  Company Number: JP-OTSUKA-JP-2013-10880

PATIENT
  Age: 76 Year
  Sex: Male
  Weight: 58 kg

DRUGS (13)
  1. SAMSCA [Suspect]
     Indication: FLUID RETENTION
     Dosage: 7.5 MG MILLIGRAM(S), QAM
     Route: 048
     Dates: start: 20120515, end: 20120618
  2. LASIX [Suspect]
     Indication: CARDIAC FAILURE
     Dosage: 20 MG MILLIGRAM(S), DAILY DOSE
     Route: 048
     Dates: end: 20120618
  3. DOBUPUM [Concomitant]
     Indication: CARDIAC FAILURE
     Dosage: 144 MG MILLIGRAM(S), DAILY DOSE
     Route: 042
     Dates: end: 20120531
  4. DOBUPUM [Concomitant]
     Dosage: 144 MG MILLIGRAM(S), DAILY DOSE
     Route: 042
     Dates: start: 20120618, end: 20120618
  5. HALFDIGOXIN [Concomitant]
     Indication: CARDIAC FAILURE
     Dosage: 0.125 MG MILLIGRAM(S), DAILY DOSE
     Route: 048
     Dates: end: 20120618
  6. NU-LOTAN [Concomitant]
     Indication: CARDIAC FAILURE
     Dosage: 25 MG MILLIGRAM(S), DAILY DOSE
     Route: 048
  7. TAKEPRON [Concomitant]
     Dosage: 15 MG MILLIGRAM(S), DAILY DOSE
     Route: 048
  8. ARTIST [Concomitant]
     Indication: CARDIAC FAILURE
     Dosage: 5 MG MILLIGRAM(S), DAILY DOSE
     Route: 048
  9. ALDACTONE A [Concomitant]
     Indication: CARDIAC FAILURE
     Dosage: 25 MG MILLIGRAM(S), DAILY DOSE
     Route: 048
  10. BAYASPIRIN [Concomitant]
     Indication: CARDIAC FAILURE
     Dosage: 100 MG MILLIGRAM(S), DAILY DOSE
     Route: 048
  11. ANCARON [Concomitant]
     Dosage: 100 MG MILLIGRAM(S), DAILY DOSE
     Route: 048
  12. GASMOTIN [Concomitant]
     Dosage: 15 MG MILLIGRAM(S), DAILY DOSE
     Route: 048
  13. MAGLAX [Concomitant]
     Dosage: 660 MG MILLIGRAM(S), DAILY DOSE
     Route: 048

REACTIONS (6)
  - Thirst [Recovering/Resolving]
  - Cardiac failure [Fatal]
  - Renal impairment [Unknown]
  - Hepatic congestion [Unknown]
  - Low cardiac output syndrome [Unknown]
  - Generalised oedema [Unknown]
